FAERS Safety Report 7139343-X (Version None)
Quarter: 2010Q4

REPORT INFORMATION
  Report Type: 
  Country: None (occurrence: None)
  Receive Date: 20101206
  Receipt Date: 20101123
  Transmission Date: 20110411
  Serious: Yes (Death)
  Sender: FDA-Public Use
  Company Number: NZ-MYLANLABS-2010S1021587

PATIENT
  Age: 19 Year
  Sex: Male

DRUGS (7)
  1. FLUOXETINE HCL [Suspect]
     Indication: DEPRESSION
     Route: 048
     Dates: start: 20080305, end: 20080320
  2. CAFERGOT [Concomitant]
     Indication: MIGRAINE
     Route: 048
  3. PARAMAX [Concomitant]
     Indication: MIGRAINE
     Route: 048
  4. FLUOX [Concomitant]
     Route: 048
     Dates: start: 20070331, end: 20070817
  5. FLUOX [Concomitant]
     Route: 048
     Dates: start: 20070316, end: 20070330
  6. FLUOX [Concomitant]
     Route: 048
     Dates: start: 20070116, end: 20070315
  7. FLUOX [Concomitant]
     Route: 048
     Dates: start: 20070112, end: 20070115

REACTIONS (11)
  - ABNORMAL DREAMS [None]
  - AGGRESSION [None]
  - AKATHISIA [None]
  - AMNESIA [None]
  - ANGER [None]
  - COMPLETED SUICIDE [None]
  - DISTURBANCE IN ATTENTION [None]
  - FATIGUE [None]
  - HALLUCINATION [None]
  - SELF-INJURIOUS IDEATION [None]
  - SEXUAL DYSFUNCTION [None]
